FAERS Safety Report 7943462-5 (Version None)
Quarter: 2011Q4

REPORT INFORMATION
  Report Type: 
  Country: None (occurrence: None)
  Receive Date: 20111128
  Receipt Date: 20111124
  Transmission Date: 20120403
  Serious: Yes (Death, Hospitalization)
  Sender: FDA-Public Use
  Company Number: DE-B.I. PHARMACEUTICALS,INC./RIDGEFIELD-2011-DE-06547DE

PATIENT
  Sex: Male
  Weight: 75 kg

DRUGS (5)
  1. GABAPENTIN [Concomitant]
     Dosage: 1800 MG
  2. PRADAXA [Suspect]
     Indication: ATRIAL FIBRILLATION
     Dosage: 220 MG
     Route: 048
     Dates: start: 20111008, end: 20111024
  3. NOVALGIN [Concomitant]
     Dosage: 120 ANZ
  4. TORSEMIDE [Concomitant]
     Dosage: 5 MG
  5. EPLERENON [Concomitant]
     Dosage: 25 MG

REACTIONS (1)
  - UPPER GASTROINTESTINAL HAEMORRHAGE [None]
